FAERS Safety Report 10576324 (Version 2)
Quarter: 2014Q4

REPORT INFORMATION
  Report Type: Spontaneous
  Country: BR (occurrence: BR)
  Receive Date: 20141111
  Receipt Date: 20141215
  Transmission Date: 20150529
  Serious: Yes (Other)
  Sender: FDA-Public Use
  Company Number: BR-SA-2014SA152610

PATIENT
  Age: 48 Year
  Sex: Female
  Weight: 60 kg

DRUGS (1)
  1. CEREZYME [Suspect]
     Active Substance: IMIGLUCERASE
     Indication: GAUCHER^S DISEASE
     Dosage: 09 VIALS
     Route: 041
     Dates: start: 20040205

REACTIONS (5)
  - Lacrimation increased [Recovered/Resolved]
  - Eye pain [Recovered/Resolved]
  - Eye pruritus [Recovered/Resolved]
  - Conjunctivitis [Recovered/Resolved]
  - Eye irritation [Recovered/Resolved]

NARRATIVE: CASE EVENT DATE: 20141102
